FAERS Safety Report 18152414 (Version 2)
Quarter: 2020Q4

REPORT INFORMATION
  Report Type: Spontaneous
  Country: US (occurrence: US)
  Receive Date: 20200814
  Receipt Date: 20201001
  Transmission Date: 20210113
  Serious: No
  Sender: FDA-Public Use
  Company Number: US-BAUSCH-BL-2020-022241

PATIENT
  Age: 64 Year
  Sex: Female

DRUGS (5)
  1. TOBRAMYCIN AND DEXAMETHASONE [Suspect]
     Active Substance: DEXAMETHASONE\TOBRAMYCIN
     Indication: MEIBOMIAN GLAND DYSFUNCTION
     Dosage: STRENGTH: 0.3 PERCENT/0.1 PERCENT; FREQUENCY: AT NIGHT
     Route: 047
     Dates: start: 20200729, end: 20200729
  2. DOXYCYCLINE. [Concomitant]
     Active Substance: DOXYCYCLINE
     Indication: PRODUCT USED FOR UNKNOWN INDICATION
     Route: 048
  3. TOBRAMYCIN AND DEXAMETHASONE [Suspect]
     Active Substance: DEXAMETHASONE\TOBRAMYCIN
     Indication: EYE INFECTION
     Dosage: 0.3 PERCENT/ 0.1 PERCENT; 1 DROP THREE TIMES DAILY IN HER LEFT EYE;1 DROP IN HER RIGHT EYE AT NIGHT
     Route: 047
     Dates: start: 20200730, end: 20200731
  4. TOBRAMYCIN AND DEXAMETHASONE [Suspect]
     Active Substance: DEXAMETHASONE\TOBRAMYCIN
     Dosage: STRENGTH: 0.3 PERCENT/ 0.1 PERCENT; FREQUENCY: 1 DROP IN HER LEFT EYE IN THE MORNING ONLY
     Route: 047
     Dates: start: 20200801, end: 20200801
  5. THERATEARS [Concomitant]
     Active Substance: CARBOXYMETHYLCELLULOSE SODIUM
     Indication: PRODUCT USED FOR UNKNOWN INDICATION
     Route: 047

REACTIONS (1)
  - Drug ineffective [Unknown]

NARRATIVE: CASE EVENT DATE: 2020
